FAERS Safety Report 8709784 (Version 2)
Quarter: 2013Q4

REPORT INFORMATION
  Report Type: Spontaneous
  Country: CO (occurrence: CO)
  Receive Date: 20120806
  Receipt Date: 20131106
  Transmission Date: 20140711
  Serious: Yes (Other)
  Sender: FDA-Public Use
  Company Number: CO-MERCK-1207COL006786

PATIENT
  Sex: Male

DRUGS (3)
  1. VICTRELIS [Suspect]
     Dosage: 600 MG, UNK
     Dates: start: 20120321
  2. PEG-INTRON [Suspect]
     Dosage: 80 MICROGRAM, UNK
     Dates: start: 20120321
  3. REBETOL [Suspect]
     Dosage: 2400 MG, UNK
     Dates: start: 20120321

REACTIONS (4)
  - Anaemia [Unknown]
  - Leukopenia [Unknown]
  - Fatigue [Unknown]
  - Asthenia [Unknown]
